FAERS Safety Report 9850230 (Version 1)
Quarter: 2014Q1

REPORT INFORMATION
  Report Type: Spontaneous
  Country: US (occurrence: None)
  Receive Date: 20140124
  Receipt Date: 20140124
  Transmission Date: 20141002
  Serious: Yes (Other)
  Sender: FDA-Public Use
  Company Number: None

PATIENT
  Age: 66 Year
  Sex: Female
  Weight: 78.47 kg

DRUGS (12)
  1. FLEBOGAMMA [Suspect]
     Indication: IMMUNODEFICIENCY COMMON VARIABLE
     Route: 042
     Dates: start: 20140108, end: 20140108
  2. AMITRIPTYLINE [Concomitant]
  3. CYMBALTA [Concomitant]
  4. LEVETIRACETAM [Concomitant]
  5. LISINOPRIL [Concomitant]
  6. VERAPAMIL [Concomitant]
  7. METOPROLOL [Concomitant]
  8. GABAPENTIN [Concomitant]
  9. TRAMADOL [Concomitant]
  10. PANTOPRAZOLE [Concomitant]
  11. AZATHIOPRINE [Concomitant]
  12. BACTRIM DS [Concomitant]

REACTIONS (2)
  - Blood pressure decreased [None]
  - Feeling cold [None]
